FAERS Safety Report 20501677 (Version 1)
Quarter: 2022Q1

REPORT INFORMATION
  Report Type: Spontaneous
  Country: CA (occurrence: CA)
  Receive Date: 20220222
  Receipt Date: 20220222
  Transmission Date: 20220423
  Serious: Yes (Other)
  Sender: FDA-Public Use
  Company Number: CA-JNJFOC-20220244642

PATIENT
  Age: 21 Year
  Sex: Female
  Weight: 54 kg

DRUGS (3)
  1. REMICADE [Suspect]
     Active Substance: INFLIXIMAB
     Indication: Colitis ulcerative
     Route: 042
  2. BUDESONIDE [Concomitant]
     Active Substance: BUDESONIDE
     Route: 054
  3. MESALAMINE [Concomitant]
     Active Substance: MESALAMINE
     Route: 048

REACTIONS (3)
  - Rhinitis [Unknown]
  - Fatigue [Unknown]
  - Headache [Unknown]
